FAERS Safety Report 11368673 (Version 3)
Quarter: 2016Q2

REPORT INFORMATION
  Report Type: Report from Study
  Country: FR (occurrence: FR)
  Receive Date: 20150812
  Receipt Date: 20160622
  Transmission Date: 20160815
  Serious: Yes (Hospitalization)
  Sender: FDA-Public Use
  Company Number: FR-ROCHE-1586742

PATIENT
  Age: 60 Year
  Sex: Female
  Weight: 48 kg

DRUGS (36)
  1. BEVACIZUMAB [Suspect]
     Active Substance: BEVACIZUMAB
     Route: 042
     Dates: start: 20150708
  2. MOTILIUM [Concomitant]
     Active Substance: DOMPERIDONE
     Route: 065
     Dates: start: 20131219
  3. RELPAX [Concomitant]
     Active Substance: ELETRIPTAN HYDROBROMIDE
  4. CIFLOX (FRANCE) [Concomitant]
     Active Substance: CIPROFLOXACIN
     Route: 065
     Dates: start: 20140126, end: 20140202
  5. CEFUROXIME. [Concomitant]
     Active Substance: CEFUROXIME
     Route: 065
     Dates: start: 20140126, end: 20140202
  6. PACLITAXEL. [Suspect]
     Active Substance: PACLITAXEL
     Indication: OVARIAN EPITHELIAL CANCER
     Dosage: LAST DOSE PRIOR TO SAE (CAECAL PERFORATION AND SUB-OCCLUSIVE INTESTINAL SYNDROME): 01/JUL/2014
     Route: 042
     Dates: start: 20131219, end: 20141221
  7. FORTIMEL [Concomitant]
     Active Substance: DIETARY SUPPLEMENT
     Route: 065
     Dates: start: 20140217
  8. IXPRIM [Concomitant]
     Active Substance: ACETAMINOPHEN\TRAMADOL HYDROCHLORIDE
     Route: 065
     Dates: start: 20140402
  9. DOLIPRANE [Concomitant]
     Active Substance: ACETAMINOPHEN
     Route: 065
     Dates: start: 20141103
  10. DOLENIO [Concomitant]
     Active Substance: GLUCOSAMINE
     Route: 065
     Dates: start: 20141014
  11. IMODIUM [Concomitant]
     Active Substance: LOPERAMIDE HYDROCHLORIDE
     Route: 065
     Dates: start: 20131219
  12. TARDYFERON (FRANCE) [Concomitant]
     Route: 065
     Dates: start: 20140303
  13. NORMACOL [Concomitant]
     Active Substance: KARAYA GUM
     Route: 065
     Dates: start: 20150310
  14. EMEND [Concomitant]
     Active Substance: APREPITANT
     Route: 065
     Dates: start: 20131219
  15. AVLOCARDYL [Concomitant]
     Active Substance: PROPRANOLOL HYDROCHLORIDE
  16. LEXOMIL [Concomitant]
     Active Substance: BROMAZEPAM
  17. SPASFON-LYOC [Concomitant]
     Active Substance: PHLOROGLUCINOL
     Route: 065
     Dates: start: 20140414
  18. STILNOX [Concomitant]
     Active Substance: ZOLPIDEM TARTRATE
     Route: 065
     Dates: start: 20140902, end: 20140923
  19. FORLAX [Concomitant]
     Active Substance: POLYETHYLENE GLYCOL 4000
     Route: 065
     Dates: start: 20140106
  20. PAROXETINE. [Concomitant]
     Active Substance: PAROXETINE
     Route: 065
     Dates: start: 20150126
  21. CARBOPLATIN. [Suspect]
     Active Substance: CARBOPLATIN
     Indication: OVARIAN CANCER
     Dosage: DATE OF LAST DOSE PRIOR TO SAE (CAECAL PERFORATION AND SUB-OCCLUSIVE INTESTINAL SYNDROME): 01/JUL/20
     Route: 042
     Dates: start: 20131219
  22. XYZAL [Concomitant]
     Active Substance: LEVOCETIRIZINE DIHYDROCHLORIDE
     Route: 065
     Dates: start: 20131219
  23. SPECIAFOLDINE [Concomitant]
     Active Substance: FOLIC ACID
     Route: 065
     Dates: start: 20140303
  24. BEVACIZUMAB [Suspect]
     Active Substance: BEVACIZUMAB
     Indication: OVARIAN EPITHELIAL CANCER
     Dosage: DATE OF LAST DOSE PRIOR TO SAE (CAECAL PERFORATION AND SUB-OCCLUSIVE INTESTINAL SYNDROME): 10/MAR/20
     Route: 042
     Dates: start: 20131219
  25. PEGYLATED LIPOSOMAL DOXORUBICIN HYDROCHLORIDE [Suspect]
     Active Substance: DOXORUBICIN HYDROCHLORIDE
     Indication: OVARIAN EPITHELIAL CANCER
     Route: 042
     Dates: start: 20150331
  26. AZANTAC [Concomitant]
     Active Substance: RANITIDINE HYDROCHLORIDE
     Route: 065
     Dates: start: 20131219
  27. CORTANCYL [Concomitant]
     Active Substance: PREDNISONE
     Route: 065
     Dates: start: 20131219
  28. OMEPRAZOLE. [Concomitant]
     Active Substance: OMEPRAZOLE
     Route: 065
     Dates: start: 20140106
  29. SMECTA [Concomitant]
     Active Substance: MONTMORILLONITE
     Route: 065
     Dates: start: 20140414
  30. CARBOSYLANE [Concomitant]
     Active Substance: ACTIVATED CHARCOAL\DIMETHICONE
     Route: 065
     Dates: start: 20140701
  31. CARBOPLATIN. [Suspect]
     Active Substance: CARBOPLATIN
     Route: 065
     Dates: start: 20150331
  32. HEC (FRANCE) [Concomitant]
     Route: 065
     Dates: start: 20140217
  33. FRAGMINE [Concomitant]
     Active Substance: DALTEPARIN SODIUM
     Route: 065
     Dates: start: 20140329, end: 20140415
  34. OROKEN [Concomitant]
     Active Substance: CEFIXIME
     Route: 065
     Dates: start: 20140402, end: 20140405
  35. PARACETAMOL [Concomitant]
     Active Substance: ACETAMINOPHEN
     Route: 065
     Dates: start: 20140402
  36. DOLENIO [Concomitant]
     Active Substance: GLUCOSAMINE
     Route: 065
     Dates: start: 20141014

REACTIONS (8)
  - Peritonitis [Recovered/Resolved with Sequelae]
  - Cardiac failure [Recovering/Resolving]
  - Leukopenia [Recovered/Resolved]
  - Large intestine perforation [Recovered/Resolved with Sequelae]
  - Thrombocytopenia [Recovered/Resolved]
  - Subileus [Recovered/Resolved with Sequelae]
  - Shock [Recovered/Resolved]
  - Neutropenia [Recovered/Resolved]

NARRATIVE: CASE EVENT DATE: 20150317
